FAERS Safety Report 25130623 (Version 1)
Quarter: 2025Q1

REPORT INFORMATION
  Report Type: Spontaneous
  Country: FR (occurrence: FR)
  Receive Date: 20250327
  Receipt Date: 20250327
  Transmission Date: 20250409
  Serious: Yes (Death, Congenital Anomaly)
  Sender: SANDOZ
  Company Number: None

PATIENT
  Age: 34 Year
  Sex: Male

DRUGS (3)
  1. ACLASTA [Suspect]
     Active Substance: ZOLEDRONIC ACID
     Indication: Product used for unknown indication
     Dosage: 5 MG, QD
     Route: 065
  2. KINERET [Suspect]
     Active Substance: ANAKINRA
     Indication: Still^s disease
     Dosage: 100 MG, QD
     Route: 065
     Dates: start: 200705
  3. CHOLECALCIFEROL [Suspect]
     Active Substance: CHOLECALCIFEROL
     Indication: Product used for unknown indication
     Dosage: AMPOULE, Q3MO
     Route: 065

REACTIONS (3)
  - Congenital central nervous system anomaly [Fatal]
  - Abortion induced [Fatal]
  - Pregnancy of partner [Unknown]

NARRATIVE: CASE EVENT DATE: 20100101
